FAERS Safety Report 5444826-4 (Version None)
Quarter: 2007Q3

REPORT INFORMATION
  Report Type: 
  Country: None (occurrence: None)
  Receive Date: 20070906
  Receipt Date: 20070830
  Transmission Date: 20080115
  Serious: Yes (Other)
  Sender: FDA-Public Use
  Company Number: GB-AMGEN-US241654

PATIENT
  Sex: Female

DRUGS (3)
  1. ENBREL [Suspect]
     Indication: PSORIATIC ARTHROPATHY
     Route: 058
     Dates: start: 20010401, end: 20020601
  2. ENBREL [Suspect]
     Indication: JUVENILE ARTHRITIS
  3. PETHIDINE [Concomitant]
     Indication: PAIN
     Dosage: UNKNOWN
     Route: 048
     Dates: end: 20020601

REACTIONS (2)
  - DRUG EXPOSURE DURING PREGNANCY [None]
  - MALIGNANT MELANOMA [None]
